FAERS Safety Report 5733013-8 (Version None)
Quarter: 2008Q2

REPORT INFORMATION
  Report Type: 
  Country: None (occurrence: None)
  Receive Date: 20080509
  Receipt Date: 20080430
  Transmission Date: 20081010
  Serious: Yes (Other)
  Sender: FDA-Public Use
  Company Number: US-BAYER-200813199NA

PATIENT
  Age: 18 Year
  Sex: Female
  Weight: 115 kg

DRUGS (5)
  1. LEUKINE [Suspect]
     Indication: OVARIAN GERM CELL CANCER
     Route: 058
     Dates: start: 20071006, end: 20071006
  2. LEUKINE [Suspect]
     Route: 058
     Dates: start: 20070915, end: 20070927
  3. BLEOMYCIN SULFATE [Concomitant]
     Indication: OVARIAN GERM CELL CANCER
  4. ETOPOSIDE [Concomitant]
     Indication: OVARIAN GERM CELL CANCER
  5. CISPLATIN [Concomitant]
     Indication: OVARIAN GERM CELL CANCER

REACTIONS (5)
  - BACK PAIN [None]
  - DIARRHOEA [None]
  - DIZZINESS [None]
  - HYPERHIDROSIS [None]
  - SYNCOPE [None]
